FAERS Safety Report 25450922 (Version 1)
Quarter: 2025Q2

REPORT INFORMATION
  Report Type: Spontaneous
  Country: US (occurrence: None)
  Receive Date: 20250618
  Receipt Date: 20250618
  Transmission Date: 20250717
  Serious: Yes (Hospitalization)
  Sender: INCYTE
  Company Number: US-INCYTE CORPORATION-2025IN006240

PATIENT

DRUGS (1)
  1. JAKAFI [Suspect]
     Active Substance: RUXOLITINIB
     Indication: Acute graft versus host disease
     Dosage: 15 MILLIGRAM (5MG TABLET AND 10MG TABLET), QD

REACTIONS (1)
  - Ill-defined disorder [Unknown]
